FAERS Safety Report 5893731-8 (Version None)
Quarter: 2008Q3

REPORT INFORMATION
  Report Type: 
  Country: None (occurrence: None)
  Receive Date: 20080923
  Receipt Date: 20080917
  Transmission Date: 20090109
  Serious: Yes (Hospitalization, Other)
  Sender: FDA-Public Use
  Company Number: CA-WYE-G00677407

PATIENT
  Sex: Female

DRUGS (13)
  1. SIROLIMUS [Suspect]
     Indication: PROPHYLAXIS AGAINST TRANSPLANT REJECTION
     Route: 048
     Dates: start: 20070412, end: 20071101
  2. SIROLIMUS [Suspect]
     Route: 048
  3. PREDNISONE [Suspect]
     Indication: PROPHYLAXIS AGAINST TRANSPLANT REJECTION
     Route: 048
     Dates: start: 20070427
  4. SEPTRA [Concomitant]
     Dosage: UNKNOWN
     Dates: start: 20071012
  5. LASIX [Concomitant]
     Dosage: UNKNOWN
     Dates: start: 20070920
  6. TACROLIMUS [Suspect]
     Indication: PROPHYLAXIS AGAINST TRANSPLANT REJECTION
  7. COLACE [Concomitant]
     Dosage: UNKNOWN
     Dates: start: 20070303
  8. AMITRIPTYLINE HCL [Concomitant]
     Dosage: UNKNOWN
     Dates: start: 20070301
  9. MORPHINE SULFATE INJ [Concomitant]
     Dosage: UNKNOWN
     Dates: start: 20070501, end: 20070503
  10. INSULIN [Concomitant]
     Dosage: UNKNOWN
     Dates: start: 20070218
  11. SENOKOT [Concomitant]
     Dosage: UNKNOWN
     Dates: start: 20071107
  12. MYCOPHENOLATE MOFETIL [Concomitant]
     Indication: PROPHYLAXIS AGAINST TRANSPLANT REJECTION
     Route: 048
     Dates: start: 20070412
  13. LANSOPRAZOLE [Concomitant]
     Dosage: UNKNOWN
     Dates: start: 20070217

REACTIONS (7)
  - ABDOMINAL WALL INFECTION [None]
  - ENTEROCOCCAL INFECTION [None]
  - ESCHERICHIA INFECTION [None]
  - HERNIA OBSTRUCTIVE [None]
  - IMPAIRED HEALING [None]
  - WOUND DEHISCENCE [None]
  - WOUND INFECTION STAPHYLOCOCCAL [None]
